FAERS Safety Report 21357309 (Version 2)
Quarter: 2022Q4

REPORT INFORMATION
  Report Type: Spontaneous
  Country: US (occurrence: None)
  Receive Date: 20220921
  Receipt Date: 20221107
  Transmission Date: 20230113
  Serious: No
  Sender: FDA-Public Use
  Company Number: 2022A311207

PATIENT
  Sex: Male
  Weight: 70.3 kg

DRUGS (2)
  1. SYMBICORT [Suspect]
     Active Substance: BUDESONIDE\FORMOTEROL FUMARATE DIHYDRATE
     Indication: Asthma
     Dosage: 160/4.5 MCG, UNKNOWN FREQUENCY UNKNOWN
     Route: 055
     Dates: start: 2022
  2. SYMBICORT [Suspect]
     Active Substance: BUDESONIDE\FORMOTEROL FUMARATE DIHYDRATE
     Indication: Chronic obstructive pulmonary disease
     Dosage: 160/4.5 MCG, UNKNOWN FREQUENCY UNKNOWN
     Route: 055
     Dates: start: 2022

REACTIONS (8)
  - Wheezing [Unknown]
  - Asthma [Unknown]
  - Insomnia [Unknown]
  - Device use issue [Unknown]
  - Wrong technique in device usage process [Unknown]
  - Product dose omission issue [Unknown]
  - Device malfunction [Unknown]
  - Device delivery system issue [Unknown]
